FAERS Safety Report 5169992-X (Version None)
Quarter: 2006Q4

REPORT INFORMATION
  Report Type: 
  Country: None (occurrence: None)
  Receive Date: 20061212
  Receipt Date: 20061110
  Transmission Date: 20070319
  Serious: Yes (Other)
  Sender: FDA-Public Use
  Company Number: BE-GLAXOSMITHKLINE-B0446496A

PATIENT

DRUGS (4)
  1. CEFUROXIME [Suspect]
     Dosage: 500MG SINGLE DOSE
  2. DEXTROMETHORPHAN HYDROBROMIDE [Concomitant]
  3. LYSOMUCIL [Concomitant]
  4. SINUTAB [Concomitant]

REACTIONS (10)
  - ANAPHYLACTIC REACTION [None]
  - DYSPHAGIA [None]
  - ERYTHEMA [None]
  - EYE SWELLING [None]
  - HYPOTENSION [None]
  - LIP OEDEMA [None]
  - PHARYNGEAL OEDEMA [None]
  - PRURITUS [None]
  - RASH [None]
  - TREMOR [None]
